FAERS Safety Report 7602050-0 (Version None)
Quarter: 2011Q3

REPORT INFORMATION
  Report Type: 
  Country: None (occurrence: None)
  Receive Date: 20110711
  Receipt Date: 20110706
  Transmission Date: 20111222
  Serious: Yes (Death)
  Sender: FDA-Public Use
  Company Number: AU-SANOFI-AVENTIS-2011SA038845

PATIENT

DRUGS (1)
  1. OXALIPLATIN [Suspect]
     Indication: METASTATIC GASTRIC CANCER

REACTIONS (2)
  - DEATH [None]
  - OFF LABEL USE [None]
